FAERS Safety Report 9781157 (Version 1)
Quarter: 2013Q4

REPORT INFORMATION
  Report Type: Spontaneous
  Country: US (occurrence: US)
  Receive Date: 20131224
  Receipt Date: 20131224
  Transmission Date: 20140711
  Serious: Yes (Other)
  Sender: FDA-Public Use
  Company Number: US-UCBSA-106412

PATIENT
  Sex: Female

DRUGS (3)
  1. KEPPRA [Suspect]
     Indication: CONVULSION
  2. TRILEPTAL [Concomitant]
  3. TRILEPTAL [Concomitant]

REACTIONS (6)
  - Red blood cell count decreased [Unknown]
  - White blood cell count decreased [Unknown]
  - Convulsion [Not Recovered/Not Resolved]
  - Dyspnoea [Recovering/Resolving]
  - Dizziness [Recovering/Resolving]
  - Chest pain [Recovering/Resolving]
